FAERS Safety Report 13110710 (Version 4)
Quarter: 2017Q1

REPORT INFORMATION
  Report Type: Report from Study
  Country: ES (occurrence: ES)
  Receive Date: 20170112
  Receipt Date: 20170216
  Transmission Date: 20170428
  Serious: Yes (Hospitalization)
  Sender: FDA-Public Use
  Company Number: ES-AMGEN-ESPCT2016178524

PATIENT
  Age: 61 Year
  Sex: Male
  Weight: 66.5 kg

DRUGS (9)
  1. VITAMIN K [Concomitant]
     Active Substance: PHYTONADIONE
     Dosage: 20 MG, UNK
     Route: 048
     Dates: start: 201606, end: 20161213
  2. TALIMOGENE LAHERPAREPVEC [Suspect]
     Active Substance: TALIMOGENE LAHERPAREPVEC
     Indication: HEPATOCELLULAR CARCINOMA
     Dosage: 4 ML, UNK
     Route: 025
     Dates: start: 20161115, end: 20161214
  3. OMEPRAZOLE. [Concomitant]
     Active Substance: OMEPRAZOLE
     Dosage: 20 MG, UNK
     Route: 048
     Dates: start: 201606, end: 20170103
  4. POTASSIUM [Concomitant]
     Active Substance: POTASSIUM
     Dosage: 1 UNK, UNK
     Route: 048
     Dates: start: 201606, end: 20161213
  5. FUROSEMIDE. [Concomitant]
     Active Substance: FUROSEMIDE
     Dosage: 40-80, MG, UNK
     Route: 048
     Dates: start: 201606, end: 20170102
  6. SPIRONOLACTONE. [Concomitant]
     Active Substance: SPIRONOLACTONE
     Dosage: 100 MG, UNK
     Route: 048
     Dates: start: 201606, end: 20170103
  7. IBUPROFEN. [Concomitant]
     Active Substance: IBUPROFEN
     Dosage: 600 MG, UNK
     Route: 048
     Dates: start: 2016
  8. METAMIZOL [Concomitant]
     Active Substance: METAMIZOLE SODIUM
     Dosage: 2-575 MG, UNK
     Route: 048
     Dates: start: 2016
  9. ONDANSETRON [Concomitant]
     Active Substance: ONDANSETRON
     Dosage: 4 MG, UNK
     Route: 048
     Dates: start: 201606

REACTIONS (2)
  - Pyrexia [Recovered/Resolved]
  - Transaminases increased [Recovered/Resolved]

NARRATIVE: CASE EVENT DATE: 20161214
